FAERS Safety Report 7547864-0 (Version None)
Quarter: 2011Q2

REPORT INFORMATION
  Report Type: 
  Country: None (occurrence: None)
  Receive Date: 20110615
  Receipt Date: 20110607
  Transmission Date: 20111010
  Serious: No
  Sender: FDA-Public Use
  Company Number: US-BIOGENIDEC-2010BI043415

PATIENT
  Age: 55 Year
  Sex: Female

DRUGS (2)
  1. AVONEX [Concomitant]
     Indication: MULTIPLE SCLEROSIS
     Route: 030
  2. TYSABRI [Suspect]
     Indication: MULTIPLE SCLEROSIS
     Route: 042
     Dates: start: 20090602

REACTIONS (8)
  - BALANCE DISORDER [None]
  - GENERAL SYMPTOM [None]
  - MUSCLE SPASTICITY [None]
  - SECONDARY PROGRESSIVE MULTIPLE SCLEROSIS [None]
  - GAIT DISTURBANCE [None]
  - FALL [None]
  - JOINT INJURY [None]
  - DRUG INEFFECTIVE [None]
